FAERS Safety Report 8607230 (Version 3)
Quarter: 2014Q1

REPORT INFORMATION
  Report Type: Spontaneous
  Country: US (occurrence: US)
  Receive Date: 20120611
  Receipt Date: 20140109
  Transmission Date: 20141002
  Serious: Yes (Hospitalization, Disabling)
  Sender: FDA-Public Use
  Company Number: US-ASTRAZENECA-2012SE34612

PATIENT
  Age: 51 Year
  Sex: Female

DRUGS (12)
  1. NEXIUM [Suspect]
     Indication: GASTROOESOPHAGEAL REFLUX DISEASE
     Dosage: ONCE A DAY
     Route: 048
     Dates: start: 2005
  2. NEXIUM [Suspect]
     Indication: GASTROOESOPHAGEAL REFLUX DISEASE
     Route: 048
     Dates: start: 20080502
  3. PRILOSEC [Suspect]
     Route: 048
     Dates: start: 20070510
  4. ZANTAC [Concomitant]
  5. HYDROCODONE/ACETAMINOPH [Concomitant]
     Dates: start: 20070404
  6. KETOPROFEN [Concomitant]
     Dates: start: 20070404
  7. CYCLOBENZAPRINE [Concomitant]
     Dates: start: 20070404
  8. KLOR-CON [Concomitant]
     Dates: start: 20070418
  9. DIPHENHYDRAMINE [Concomitant]
     Dates: start: 20070418
  10. LUNESTA [Concomitant]
     Dates: start: 20070504
  11. TRAMADOL HCL [Concomitant]
     Dates: start: 20070510
  12. LYRICA [Concomitant]
     Dates: start: 20081201

REACTIONS (8)
  - Cerebrovascular accident [Unknown]
  - Mental disability [Unknown]
  - Physical disability [Unknown]
  - Osteoporosis [Unknown]
  - Bone disorder [Unknown]
  - Multiple fractures [Unknown]
  - Type 2 diabetes mellitus [Unknown]
  - Depression [Unknown]
